FAERS Safety Report 6464572-8 (Version None)
Quarter: 2009Q4

REPORT INFORMATION
  Report Type: 
  Country: None (occurrence: None)
  Receive Date: 20091201
  Receipt Date: 20091119
  Transmission Date: 20100525
  Serious: Yes (Other)
  Sender: FDA-Public Use
  Company Number: FR-PFIZER INC-2009299835

PATIENT
  Age: 55 Year
  Sex: Female

DRUGS (5)
  1. FARMORUBICINE [Suspect]
     Indication: BREAST CANCER
     Dosage: 100 MG/M2, UNK
     Route: 042
     Dates: start: 20071218, end: 20080131
  2. FLUOROURACIL [Suspect]
     Indication: BREAST CANCER
     Dosage: 100 MG/M2, UNK
     Route: 042
     Dates: start: 20071218, end: 20080131
  3. HERCEPTIN [Suspect]
     Indication: BREAST CANCER
     Dosage: 450 MG, EVERY 3 WEEKS
     Route: 042
     Dates: start: 20080222, end: 20080616
  4. ENDOXAN [Suspect]
     Indication: BREAST CANCER
     Dosage: 500 MG/M2, UNK
     Route: 042
     Dates: start: 20071218, end: 20080131
  5. TAXOTERE [Suspect]
     Indication: BREAST CANCER
     Dosage: 100 MG/M2, UNK
     Route: 042
     Dates: start: 20080222, end: 20080403

REACTIONS (1)
  - CONGESTIVE CARDIOMYOPATHY [None]
